FAERS Safety Report 8357228-8 (Version None)
Quarter: 2012Q2

REPORT INFORMATION
  Report Type: 
  Country: None (occurrence: None)
  Receive Date: 20120514
  Receipt Date: 20120509
  Transmission Date: 20120825
  Serious: Yes (Death)
  Sender: FDA-Public Use
  Company Number: US-GILEAD-2012-0053699

PATIENT
  Sex: Male

DRUGS (4)
  1. LETAIRIS [Suspect]
     Indication: RESPIRATORY FAILURE
  2. LETAIRIS [Suspect]
     Indication: PULMONARY HYPERTENSION
     Dosage: 5 MG, UNK
     Route: 048
     Dates: start: 20120211
  3. LETAIRIS [Suspect]
     Indication: SCLERODERMA
  4. LETAIRIS [Suspect]
     Indication: COR PULMONALE

REACTIONS (3)
  - PULMONARY HYPERTENSION [None]
  - RESPIRATORY FAILURE [None]
  - PULMONARY FIBROSIS [None]
